FAERS Safety Report 12435581 (Version 1)
Quarter: 2016Q2

REPORT INFORMATION
  Report Type: Spontaneous
  Country: US (occurrence: US)
  Receive Date: 20160603
  Receipt Date: 20160603
  Transmission Date: 20160815
  Serious: No
  Sender: FDA-Public Use
  Company Number: US-ROCHE-1661997

PATIENT
  Sex: Male
  Weight: 72.1 kg

DRUGS (4)
  1. KLONOPIN [Suspect]
     Active Substance: CLONAZEPAM
     Indication: PRODUCT USED FOR UNKNOWN INDICATION
     Route: 065
  2. AMPYRA [Suspect]
     Active Substance: DALFAMPRIDINE
     Indication: GAIT DISTURBANCE
  3. OMEGA 3 [Concomitant]
     Active Substance: OMEGA-3 FATTY ACIDS
  4. AMPYRA [Suspect]
     Active Substance: DALFAMPRIDINE
     Indication: MULTIPLE SCLEROSIS
     Route: 048
     Dates: start: 20100513

REACTIONS (8)
  - Balance disorder [Unknown]
  - Stress [Unknown]
  - Drug ineffective [Unknown]
  - Headache [Unknown]
  - Drug effect decreased [Unknown]
  - White blood cell count decreased [Unknown]
  - Mood altered [Unknown]
  - Fall [Unknown]
